FAERS Safety Report 13599596 (Version 3)
Quarter: 2017Q2

REPORT INFORMATION
  Report Type: Report from Study
  Country: None (occurrence: SE)
  Receive Date: 20170531
  Receipt Date: 20170617
  Transmission Date: 20170830
  Serious: Yes (Hospitalization, Other)
  Sender: FDA-Public Use
  Company Number: SE-ABBVIE-17K-150-1991442-00

PATIENT
  Age: 74 Year
  Sex: Male

DRUGS (2)
  1. DUODOPA [Suspect]
     Active Substance: CARBIDOPA\LEVODOPA
     Route: 050
     Dates: start: 20120326
  2. DUODOPA [Suspect]
     Active Substance: CARBIDOPA\LEVODOPA
     Indication: PARKINSON^S DISEASE
     Route: 050
     Dates: start: 20120229, end: 20120326

REACTIONS (6)
  - Heart valve operation [Unknown]
  - Device leakage [Unknown]
  - Tooth infection [Recovered/Resolved]
  - Hyperkinesia [Not Recovered/Not Resolved]
  - Endocarditis [Recovering/Resolving]
  - Alpha haemolytic streptococcal infection [Recovering/Resolving]

NARRATIVE: CASE EVENT DATE: 201611
